FAERS Safety Report 10095031 (Version 1)
Quarter: 2014Q2

REPORT INFORMATION
  Report Type: Spontaneous
  Country: US (occurrence: None)
  Receive Date: 20140421
  Receipt Date: 20140421
  Transmission Date: 20141212
  Serious: Yes (Hospitalization)
  Sender: FDA-Public Use
  Company Number: None

PATIENT
  Age: 66 Year
  Sex: Male
  Weight: 77.4 kg

DRUGS (2)
  1. INSULIN [Suspect]
     Indication: TYPE 1 DIABETES MELLITUS
     Dosage: 10 UNITS  TID  SQ
     Route: 058
     Dates: start: 20120315, end: 20140409
  2. INSULIN [Suspect]
     Indication: TYPE 1 DIABETES MELLITUS
     Dosage: 50 UNITS  EVERY DAY SQ
     Route: 058
     Dates: start: 20110113, end: 20140409

REACTIONS (1)
  - Hypoglycaemia [None]
